FAERS Safety Report 6130452-0 (Version None)
Quarter: 2009Q1

REPORT INFORMATION
  Report Type: 
  Country: None (occurrence: None)
  Receive Date: 20090323
  Receipt Date: 20090313
  Transmission Date: 20090719
  Serious: Yes (Death)
  Sender: FDA-Public Use
  Company Number: OMPQ-PR-0903S-0171

PATIENT
  Age: 38 Year
  Sex: Male

DRUGS (1)
  1. OMNIPAQUE 300 [Suspect]
     Indication: INTESTINAL OBSTRUCTION
     Dosage: 600 ML, SINGLE DOSE, PO
     Route: 048
     Dates: start: 20081208, end: 20081208

REACTIONS (1)
  - DEATH [None]
